FAERS Safety Report 9859096 (Version 3)
Quarter: 2014Q1

REPORT INFORMATION
  Report Type: Spontaneous
  Country: DE (occurrence: None)
  Receive Date: 20140129
  Receipt Date: 20140318
  Transmission Date: 20141002
  Serious: Yes (Death, Other)
  Sender: FDA-Public Use
  Company Number: AUR-APL-2014-00653

PATIENT
  Age: 78 Year
  Sex: Female
  Weight: 74 kg

DRUGS (14)
  1. CLOPIDOGREL [Suspect]
     Indication: CORONARY ARTERIAL STENT INSERTION
     Route: 048
     Dates: start: 20121122, end: 20130109
  2. FERRO SANOL DUODENAL (FERROUS GLYCINE SULFATE) [Concomitant]
  3. METOBETA RETARD (METOPROLOL TARTRATE) [Concomitant]
  4. SIMVASTATIN (SIMVASTATIN) [Concomitant]
  5. TORASEMIDE (TORASEMIDE) [Concomitant]
  6. VOMEX (DIMENHYDRINATE) [Concomitant]
  7. RADEDORM (NITRAZEPAM) [Concomitant]
  8. BIFIERAL(LACTULOSE) [Concomitant]
  9. KONAKION (PHYTOMENADIONE) [Concomitant]
  10. FENISTIL 24 (DIMETINDENE MALEATE [Concomitant]
  11. PREDNI (PREDNISOLONE ACETATE) [Concomitant]
  12. HEPARIN (HEPARIN) [Concomitant]
  13. FALITHROM (PHENPROCOUMON) [Concomitant]
  14. RAMIPRIL (RAMIPRIL) [Concomitant]

REACTIONS (7)
  - Acute hepatic failure [None]
  - Haemoglobin decreased [None]
  - Haematocrit decreased [None]
  - Blood potassium decreased [None]
  - Prothrombin time prolonged [None]
  - International normalised ratio increased [None]
  - Activated partial thromboplastin time prolonged [None]
